FAERS Safety Report 12694798 (Version 2)
Quarter: 2019Q1

REPORT INFORMATION
  Report Type: Spontaneous
  Country: FR (occurrence: FR)
  Receive Date: 20160829
  Receipt Date: 20190116
  Transmission Date: 20190417
  Serious: Yes (Congenital Anomaly, Other)
  Sender: FDA-Public Use
  Company Number: FR-SA-2016SA153559

PATIENT

DRUGS (7)
  1. PREGABALIN. [Suspect]
     Active Substance: PREGABALIN
     Indication: PRODUCT USED FOR UNKNOWN INDICATION
     Dosage: 150 MG,BID
     Route: 064
  2. NICARDIPINE [Suspect]
     Active Substance: NICARDIPINE
     Indication: PRODUCT USED FOR UNKNOWN INDICATION
     Dosage: UNK UNK,UNK
     Route: 064
  3. AOTAL [Suspect]
     Active Substance: ACAMPROSATE CALCIUM
     Indication: MATERNAL EXPOSURE TIMING UNSPECIFIED
     Dosage: 333 MG,QID
     Route: 064
  4. REVIA [Suspect]
     Active Substance: NALTREXONE HYDROCHLORIDE
     Indication: MATERNAL EXPOSURE TIMING UNSPECIFIED
     Dosage: 50 MG,QD
     Route: 064
  5. ATORVASTATIN CALCIUM. [Suspect]
     Active Substance: ATORVASTATIN CALCIUM
     Indication: PRODUCT USED FOR UNKNOWN INDICATION
     Dosage: 20 MG,QD
     Route: 064
  6. HYDROCHLOROTHIAZIDE/IRBESARTAN [Suspect]
     Active Substance: HYDROCHLOROTHIAZIDE\IRBESARTAN
     Indication: MATERNAL EXPOSURE TIMING UNSPECIFIED
     Dosage: UNK UNK,UNK
     Route: 064
  7. ALCOHOL. [Suspect]
     Active Substance: ALCOHOL
     Indication: MATERNAL EXPOSURE TIMING UNSPECIFIED
     Dosage: UNK UNK,UNK
     Route: 064

REACTIONS (2)
  - Foetal alcohol syndrome [Unknown]
  - Foetal exposure during pregnancy [Unknown]
